FAERS Safety Report 4589680-8 (Version None)
Quarter: 2005Q1

REPORT INFORMATION
  Report Type: 
  Country: None (occurrence: None)
  Receive Date: 20050216
  Receipt Date: 20050207
  Transmission Date: 20050727
  Serious: Yes (Other)
  Sender: FDA-Public Use
  Company Number: GBWYE251502DEC04

PATIENT
  Age: 40 Year
  Sex: Female

DRUGS (3)
  1. LEVONORGESTREL AND ETHINYL ESTRADIOL [Suspect]
     Indication: CONTRACEPTION
     Dosage: ORAL
     Route: 048
     Dates: start: 19941011, end: 20031013
  2. SULPIRIDE (SULPIRIDE, , 0) [Suspect]
     Indication: SCHIZOPHRENIA
     Dosage: 600MG IN MORNING, 800MG NIGHTLY
     Dates: start: 19950321, end: 20040419
  3. PROCYCLIDINE HYDROCHLORIDE 2MG TAB [Concomitant]

REACTIONS (4)
  - BLOOD PROLACTIN INCREASED [None]
  - DRUG INEFFECTIVE [None]
  - DRUG WITHDRAWAL SYNDROME [None]
  - GALACTORRHOEA [None]
